FAERS Safety Report 20926477 (Version 2)
Quarter: 2022Q3

REPORT INFORMATION
  Report Type: Report from Study
  Country: FR (occurrence: FR)
  Receive Date: 20220607
  Receipt Date: 20220816
  Transmission Date: 20221027
  Serious: Yes (Death)
  Sender: FDA-Public Use
  Company Number: FR-NOVARTISPH-NVSC2021FR302129

PATIENT
  Sex: Female

DRUGS (2)
  1. TABRECTA [Suspect]
     Active Substance: CAPMATINIB
     Indication: Non-small cell lung cancer
     Dosage: 800 MG, QD
     Route: 065
     Dates: start: 20210907
  2. TABRECTA [Suspect]
     Active Substance: CAPMATINIB
     Dosage: 600 MG, QD
     Route: 065
     Dates: start: 20211217

REACTIONS (6)
  - Death [Fatal]
  - Alanine aminotransferase increased [Unknown]
  - Gamma-glutamyltransferase increased [Unknown]
  - Blood potassium increased [Unknown]
  - Blood creatinine increased [Unknown]
  - Oedema peripheral [Unknown]
